FAERS Safety Report 10036770 (Version 1)
Quarter: 2014Q1

REPORT INFORMATION
  Report Type: Spontaneous
  Country: US (occurrence: US)
  Receive Date: 20140326
  Receipt Date: 20140326
  Transmission Date: 20141002
  Serious: No
  Sender: FDA-Public Use
  Company Number: US-BIOGENIDEC-2014BI024874

PATIENT
  Age: 47 Year
  Sex: Female

DRUGS (7)
  1. TECFIDERA [Suspect]
     Indication: PRODUCT USED FOR UNKNOWN INDICATION
     Route: 048
     Dates: start: 20140203
  2. NEURONTIN [Concomitant]
  3. CELEXA [Concomitant]
  4. DEPAKOTE [Concomitant]
  5. DETROL [Concomitant]
  6. VITAMIN D [Concomitant]
  7. MOTRIN [Concomitant]

REACTIONS (3)
  - Sleep disorder [Unknown]
  - Flatulence [Unknown]
  - Nausea [Unknown]
